FAERS Safety Report 6466395-2 (Version None)
Quarter: 2009Q4

REPORT INFORMATION
  Report Type: 
  Country: None (occurrence: None)
  Receive Date: 20091202
  Receipt Date: 20091123
  Transmission Date: 20100525
  Serious: Yes (Hospitalization)
  Sender: FDA-Public Use
  Company Number: BR-ASTRAZENECA-2009SE28507

PATIENT
  Age: 69 Year
  Sex: Male

DRUGS (3)
  1. SEROQUEL XR [Suspect]
     Indication: BIPOLAR DISORDER
     Route: 048
     Dates: start: 20050101
  2. ALPRAZOLAM [Concomitant]
     Dates: start: 20080101
  3. ACETYLCYSTEINE [Concomitant]
     Dates: start: 20080101

REACTIONS (3)
  - COORDINATION ABNORMAL [None]
  - HALLUCINATION [None]
  - PNEUMONIA ASPIRATION [None]
